FAERS Safety Report 5023814-6 (Version None)
Quarter: 2006Q2

REPORT INFORMATION
  Report Type: 
  Country: None (occurrence: None)
  Receive Date: 20060606
  Receipt Date: 20060522
  Transmission Date: 20061013
  Serious: Yes (Hospitalization)
  Sender: FDA-Public Use
  Company Number: DEWYE640822MAY06

PATIENT
  Age: 65 Year
  Sex: Male

DRUGS (5)
  1. VENLAFAXINE HCL [Suspect]
     Dosage: ORAL
     Route: 048
     Dates: start: 20060521, end: 20060521
  2. GLIANIMON                   (BENPERIDOL) [Suspect]
     Dosage: 4 TABLETS (DAILY DOSE 40 MG) ORAL
     Route: 048
     Dates: start: 20060521, end: 20060521
  3. LORAZEPAM [Suspect]
     Dosage: 2 TABLETS (DAILY DOSE 1 MG) ORAL
     Route: 048
     Dates: start: 20060521, end: 20060521
  4. TRUXAL            (CHLORPROTHIXENE HYDROCHLORIDE) [Suspect]
     Dosage: 4 TABLETS ORAL
     Route: 048
     Dates: start: 20060521, end: 20060521
  5. ZYPREXA [Suspect]
     Dosage: ORAL
     Route: 048
     Dates: start: 20060521, end: 20060521

REACTIONS (3)
  - ACCIDENTAL EXPOSURE [None]
  - INCORRECT DOSE ADMINISTERED [None]
  - SOMNOLENCE [None]
